FAERS Safety Report 13139661 (Version 1)
Quarter: 2017Q1

REPORT INFORMATION
  Report Type: Spontaneous
  Country: US (occurrence: US)
  Receive Date: 20170123
  Receipt Date: 20170123
  Transmission Date: 20170428
  Serious: Yes (Other)
  Sender: FDA-Public Use
  Company Number: US-JNJFOC-20170117698

PATIENT
  Age: 75 Year
  Sex: Female
  Weight: 65.77 kg

DRUGS (4)
  1. TYLENOL ARTHRITIS PAIN [Suspect]
     Active Substance: ACETAMINOPHEN
     Route: 065
  2. IMODIUM A-D [Suspect]
     Active Substance: LOPERAMIDE HYDROCHLORIDE
     Route: 048
  3. IMODIUM A-D [Suspect]
     Active Substance: LOPERAMIDE HYDROCHLORIDE
     Indication: DIARRHOEA
     Route: 048
  4. TYLENOL ARTHRITIS PAIN [Suspect]
     Active Substance: ACETAMINOPHEN
     Indication: RHEUMATOID ARTHRITIS
     Dosage: 1 YEAR
     Route: 065

REACTIONS (1)
  - Rectal haemorrhage [Not Recovered/Not Resolved]
